FAERS Safety Report 5219839-8 (Version None)
Quarter: 2007Q1

REPORT INFORMATION
  Report Type: 
  Country: None (occurrence: None)
  Receive Date: 20070125
  Receipt Date: 20061102
  Transmission Date: 20070707
  Serious: Yes (Death, Other)
  Sender: FDA-Public Use
  Company Number: US-PFIZER INC-2007004924

PATIENT
  Sex: Male

DRUGS (3)
  1. BEXTRA [Suspect]
  2. CELEBREX [Suspect]
  3. VIOXX [Suspect]

REACTIONS (4)
  - CARDIAC ARREST [None]
  - ISCHAEMIC STROKE [None]
  - PNEUMONIA [None]
  - RESPIRATORY FAILURE [None]
